FAERS Safety Report 18991732 (Version 1)
Quarter: 2021Q1

REPORT INFORMATION
  Report Type: Spontaneous
  Country: GB (occurrence: GB)
  Receive Date: 20210310
  Receipt Date: 20210310
  Transmission Date: 20210420
  Serious: Yes (Hospitalization, Other)
  Sender: FDA-Public Use
  Company Number: NVSC2020GB248647

PATIENT
  Age: 59 Year
  Sex: Female

DRUGS (9)
  1. ADALIMUMAB [Suspect]
     Active Substance: ADALIMUMAB
     Dosage: 160 MG (WEEK ZERO)
     Route: 058
     Dates: start: 20200814
  2. INFLIXIMAB [Suspect]
     Active Substance: INFLIXIMAB
     Dosage: UNK, CYCLIC (EVERY 8 WEEK, STOPPED SEVEN WEEKS AGO 1 TIME EVERY 8 WEEK)
     Route: 042
  3. ADALIMUMAB [Suspect]
     Active Substance: ADALIMUMAB
     Dosage: 80 MG, CYCLIC  (WEEK TWO)
     Route: 058
  4. ADALIMUMAB [Suspect]
     Active Substance: ADALIMUMAB
     Dosage: 40 MG, CYCLIC (Q2W) (MAINTENANCE)
     Route: 058
  5. INFLIXIMAB [Suspect]
     Active Substance: INFLIXIMAB
     Dosage: 8QD (STOPPED SEVEN WEEKS AGO)
     Route: 042
  6. ADALIMUMAB [Suspect]
     Active Substance: ADALIMUMAB
     Indication: COLITIS ULCERATIVE
     Dosage: 40 MG, (WEEK FOUR)
     Route: 058
  7. INFLIXIMAB [Suspect]
     Active Substance: INFLIXIMAB
     Indication: PRODUCT USED FOR UNKNOWN INDICATION
     Dosage: UNK UNK, Q2MO (1 TIME EVERY 8 WEEK)
     Route: 042
  8. INFLIXIMAB [Suspect]
     Active Substance: INFLIXIMAB
     Dosage: UNK, EVERY 8 WEEKS (UNKNOWN, STOPPED SEVEN WEEKS AGO )
     Route: 065
     Dates: start: 2020
  9. INFLIXIMAB [Suspect]
     Active Substance: INFLIXIMAB
     Dosage: 1 EVERY 2 MONTHS (Q2MO)
     Route: 042

REACTIONS (11)
  - Anxiety [Unknown]
  - Sleep disorder [Unknown]
  - Weight decreased [Unknown]
  - Fatigue [Unknown]
  - Headache [Unknown]
  - Asthenia [Unknown]
  - Drug ineffective [Unknown]
  - Ill-defined disorder [Unknown]
  - Diarrhoea [Unknown]
  - Head discomfort [Unknown]
  - Injection site pain [Unknown]
